FAERS Safety Report 26217130 (Version 1)
Quarter: 2025Q4

REPORT INFORMATION
  Report Type: Spontaneous
  Country: EU (occurrence: EU)
  Receive Date: 20251231
  Receipt Date: 20251231
  Transmission Date: 20260118
  Serious: Yes (Other)
  Sender: BAXTER
  Company Number: EU-MLMSERVICE-20251218-PI754759-00082-1

PATIENT
  Age: 15 Year
  Sex: Male

DRUGS (37)
  1. DOXORUBICIN [Suspect]
     Active Substance: DOXORUBICIN
     Indication: Hodgkin^s disease nodular sclerosis stage IV
     Dosage: OEPA REGIMEN: 2 CYCLES
     Route: 065
  2. DOXORUBICIN [Suspect]
     Active Substance: DOXORUBICIN
     Indication: B-cell lymphoma unclassifiable
     Dosage: COP REGIMEN: 1 CYCLE (FOR B-CELL LYMPHOMA UNCLASSIFIABLE)
     Route: 065
  3. DOXORUBICIN [Suspect]
     Active Substance: DOXORUBICIN
     Dosage: R-COPADM REGIMEN: 2 CYCLES (FOR B-CELL LYMPHOMA UNCLASSIFIABLE)
     Route: 065
  4. CYCLOPHOSPHAMIDE [Suspect]
     Active Substance: CYCLOPHOSPHAMIDE
     Indication: Hodgkin^s disease nodular sclerosis stage IV
     Dosage: COPDAC REGIMEN: 4 CYCLES
     Route: 065
  5. CYCLOPHOSPHAMIDE [Suspect]
     Active Substance: CYCLOPHOSPHAMIDE
     Indication: B-cell lymphoma unclassifiable
     Dosage: COP REGIMEN: 1 CYCLE (FOR B-CELL LYMPHOMA UNCLASSIFIABLE)
     Route: 065
  6. CYCLOPHOSPHAMIDE [Suspect]
     Active Substance: CYCLOPHOSPHAMIDE
     Dosage: R-COPADM REGIMEN: 2 CYCLES (FOR B-CELL LYMPHOMA UNCLASSIFIABLE)
     Route: 065
  7. IFOSFAMIDE [Suspect]
     Active Substance: IFOSFAMIDE
     Indication: B-cell lymphoma unclassifiable
     Dosage: IGEV REGIMEN: 3 CYCLES (FOR B-CELL LYMPHOMA UNCLASSIFIABLE)
     Route: 065
  8. IFOSFAMIDE [Suspect]
     Active Substance: IFOSFAMIDE
     Indication: Grey zone lymphoma
     Dosage: R-ICE: 1 CYCLE (FOR GREY ZONE LYMPHOMA)
     Route: 065
  9. PREDNISONE [Suspect]
     Active Substance: PREDNISONE
     Indication: Hodgkin^s disease nodular sclerosis stage IV
     Dosage: OEPA REGIMEN: 2 CYCLES
     Route: 065
  10. PREDNISONE [Suspect]
     Active Substance: PREDNISONE
     Indication: B-cell lymphoma unclassifiable
     Dosage: COPDAC REGIMEN: 4 CYCLES
     Route: 065
  11. PREDNISONE [Suspect]
     Active Substance: PREDNISONE
     Dosage: R-COPADM REGIMEN: 2 CYCLES (FOR B-CELL LYMPHOMA UNCLASSIFIABLE)
     Route: 065
  12. VINCRISTINE [Suspect]
     Active Substance: VINCRISTINE
     Indication: Hodgkin^s disease nodular sclerosis stage IV
     Dosage: OEPA REGIMEN: 2 CYCLES
     Route: 065
  13. VINCRISTINE [Suspect]
     Active Substance: VINCRISTINE
     Indication: B-cell lymphoma unclassifiable
     Dosage: COPDAC REGIMEN: 4 CYCLES
     Route: 065
  14. VINCRISTINE [Suspect]
     Active Substance: VINCRISTINE
     Dosage: COP REGIMEN: 1 CYCLE (FOR B-CELL LYMPHOMA UNCLASSIFIABLE)
     Route: 065
  15. VINCRISTINE [Suspect]
     Active Substance: VINCRISTINE
     Dosage: R-COPADM REGIMEN: 2 CYCLES (FOR B-CELL LYMPHOMA UNCLASSIFIABLE)
     Route: 065
  16. ETOPOSIDE [Suspect]
     Active Substance: ETOPOSIDE
     Indication: Hodgkin^s disease nodular sclerosis stage IV
     Dosage: OEPA REGIMEN: 2 CYCLES
     Route: 065
  17. ETOPOSIDE [Suspect]
     Active Substance: ETOPOSIDE
     Indication: Grey zone lymphoma
     Dosage: R-CYVE: 1 CYCLE (FOR B-CELL LYMPHOMA UNCLASSIFIABLE)
     Route: 065
  18. ETOPOSIDE [Suspect]
     Active Substance: ETOPOSIDE
     Indication: B-cell lymphoma unclassifiable
     Dosage: R-ICE: 1 CYCLE (FOR GREY ZONE LYMPHOMA)
     Route: 065
  19. ETOPOSIDE [Suspect]
     Active Substance: ETOPOSIDE
     Dosage: HIGH-DOSE BEAM
     Route: 065
  20. DACARBAZINE [Suspect]
     Active Substance: DACARBAZINE
     Indication: Hodgkin^s disease nodular sclerosis stage IV
     Dosage: COPDAC REGIMEN: 4 CYCLES
     Route: 065
  21. VINORELBINE [Suspect]
     Active Substance: VINORELBINE TARTRATE
     Indication: B-cell lymphoma unclassifiable
     Dosage: 3 CYCLES OF IGEV CYCLES
     Route: 065
  22. GEMCITABINE [Suspect]
     Active Substance: GEMCITABINE
     Indication: B-cell lymphoma unclassifiable
     Dosage: IGEV REGIMEN: 3 CYCLES
     Route: 065
  23. BRENTUXIMAB VEDOTIN [Suspect]
     Active Substance: BRENTUXIMAB VEDOTIN
     Indication: B-cell lymphoma unclassifiable
     Dosage: 2 CYCLES
     Route: 065
  24. BENDAMUSTINE [Suspect]
     Active Substance: BENDAMUSTINE
     Indication: B-cell lymphoma unclassifiable
     Dosage: 2 CYCLES
     Route: 065
  25. PREDNISOLONE [Suspect]
     Active Substance: PREDNISOLONE
     Indication: B-cell lymphoma unclassifiable
     Dosage: 1 CYCLE, COP CYCLE
     Route: 065
  26. METHOTREXATE [Suspect]
     Active Substance: METHOTREXATE
     Indication: B-cell lymphoma unclassifiable
     Dosage: R-COPADM REGIMEN: 2 CYCLES
     Route: 065
  27. METHOTREXATE [Suspect]
     Active Substance: METHOTREXATE
     Dosage: R-CYM REGIMEN
     Route: 065
  28. RITUXIMAB [Suspect]
     Active Substance: RITUXIMAB
     Indication: B-cell lymphoma unclassifiable
     Dosage: R-COPADM REGIMEN: 2 CYCLES (FOR B-CELL LYMPHOMA UNCLASSIFIABLE)
     Route: 065
  29. RITUXIMAB [Suspect]
     Active Substance: RITUXIMAB
     Indication: Grey zone lymphoma
     Dosage: R-CYM REGIMEN (FOR B-CELL LYMPHOMA UNCLASSIFIABLE)
     Route: 065
  30. RITUXIMAB [Suspect]
     Active Substance: RITUXIMAB
     Dosage: R-CYVE REGIMEN: 1 CYCLE (FOR B-CELL LYMPHOMA UNCLASSIFIABLE)
     Route: 065
  31. RITUXIMAB [Suspect]
     Active Substance: RITUXIMAB
     Dosage: R-ICE CYCLE (FOR GREY ZONE LYMPHOMA)
     Route: 065
  32. CYTARABINE [Suspect]
     Active Substance: CYTARABINE
     Indication: B-cell lymphoma unclassifiable
     Dosage: R-CYM REGIMEN
     Route: 065
  33. CYTARABINE [Suspect]
     Active Substance: CYTARABINE
     Dosage: R-CYVE REGIMEN: 1 CYCLE
     Route: 065
  34. CYTARABINE [Suspect]
     Active Substance: CYTARABINE
     Dosage: HIGH-DOSE BEAM
     Route: 065
  35. DEXAMETHASONE [Suspect]
     Active Substance: DEXAMETHASONE
     Indication: B-cell lymphoma unclassifiable
     Dosage: R-CYVE REGIMEN: 1 CYCLE
     Route: 065
  36. CARBOPLATIN [Suspect]
     Active Substance: CARBOPLATIN
     Indication: Grey zone lymphoma
     Dosage: 1 CYCLE, R-ICE CYCLE
     Route: 065
  37. PEMBROLIZUMAB [Suspect]
     Active Substance: PEMBROLIZUMAB
     Indication: Grey zone lymphoma
     Dosage: 2 MG/KG, EVERY 3-4 WEEKS
     Route: 065

REACTIONS (2)
  - Systemic mycosis [Recovered/Resolved]
  - Pneumonia fungal [Recovered/Resolved]
